FAERS Safety Report 7090414-6 (Version None)
Quarter: 2010Q4

REPORT INFORMATION
  Report Type: 
  Country: None (occurrence: None)
  Receive Date: 20101109
  Receipt Date: 20100917
  Transmission Date: 20110411
  Serious: Yes (Hospitalization, Other)
  Sender: FDA-Public Use
  Company Number: US-BAYER-200943708NA

PATIENT
  Age: 26 Year
  Sex: Female
  Weight: 69 kg

DRUGS (4)
  1. YASMIN [Suspect]
     Indication: CONTRACEPTION
     Dates: start: 20030901, end: 20070601
  2. VICODIN [Concomitant]
     Indication: PRODUCT USED FOR UNKNOWN INDICATION
     Route: 065
  3. AMOXICILLIN AND CLAVULANATE POTASSIUM [Concomitant]
     Dosage: DOSE 875-125MG
     Dates: start: 20030222
  4. PROMETHEGAN [Concomitant]
     Dates: start: 20030222

REACTIONS (8)
  - ABDOMINAL PAIN [None]
  - CHOLECYSTITIS CHRONIC [None]
  - DIARRHOEA [None]
  - GALLBLADDER CHOLESTEROLOSIS [None]
  - NAUSEA [None]
  - NEPHROLITHIASIS [None]
  - NEPHROPATHY [None]
  - VOMITING [None]
